FAERS Safety Report 8133819-4 (Version None)
Quarter: 2012Q1

REPORT INFORMATION
  Report Type: 
  Country: None (occurrence: None)
  Receive Date: 20120213
  Receipt Date: 20120213
  Transmission Date: 20120608
  Serious: Yes (Other)
  Sender: FDA-Public Use
  Company Number: None

PATIENT
  Sex: Male
  Weight: 82.1 kg

DRUGS (1)
  1. PROPECIA [Suspect]
     Indication: ALOPECIA
     Dosage: 1.0 MG
     Dates: start: 20020101, end: 20110801

REACTIONS (8)
  - NERVOUSNESS [None]
  - SEMEN ANALYSIS ABNORMAL [None]
  - ERECTILE DYSFUNCTION [None]
  - ANXIETY [None]
  - LIBIDO DECREASED [None]
  - HEADACHE [None]
  - RHINORRHOEA [None]
  - SENSORY LOSS [None]
